FAERS Safety Report 16044498 (Version 1)
Quarter: 2019Q1

REPORT INFORMATION
  Report Type: Spontaneous
  Country: DK (occurrence: DK)
  Receive Date: 20190306
  Receipt Date: 20190306
  Transmission Date: 20190418
  Serious: Yes (Life-Threatening, Hospitalization)
  Sender: FDA-Public Use
  Company Number: DK-B.I. PHARMACEUTICALS,INC./RIDGEFIELD-2019-12-000767

PATIENT
  Age: 57 Year
  Sex: Female

DRUGS (15)
  1. GLYTRIN [Concomitant]
     Indication: ANGINA PECTORIS
     Dosage: DOSIS VED BEHOV STYRKE: 0,4MG/DOSIS; AS REQUIRED PHARMACEUTICAL FORM: SUBLINGUAL SPRAY
     Route: 065
     Dates: start: 20170814
  2. METOCLOPRAMIDE. [Concomitant]
     Active Substance: METOCLOPRAMIDE
     Indication: NAUSEA
     Dosage: DOSIS: EFTER BEHOV STYRKE: 10MG; AS REQUIRED
     Route: 048
     Dates: start: 20190131
  3. PARACETAMOL [Concomitant]
     Active Substance: ACETAMINOPHEN
     Indication: PAIN
     Dosage: STYRKE: 665MG FORM OF ADMINISTRATION: MODIFIED-RELEASE TABLET
     Route: 048
     Dates: start: 20190131, end: 20190204
  4. CONTALGIN [Concomitant]
     Active Substance: MORPHINE SULFATE
     Indication: PAIN
     Dosage: DOSIS: 1-2 TABLETTER TIL AFTEN. STYRKE: 5MG DOSE: 1-2 TABLETS SAT EVENING
     Route: 048
     Dates: start: 20180130
  5. LOSARTANKALIUM OG HYDROCHLORTHIAZID [Concomitant]
     Active Substance: HYDROCHLOROTHIAZIDE\LOSARTAN
     Indication: HYPERTENSION
     Dosage: STYRKE: 50+12,5 MG
     Route: 048
     Dates: start: 20190131
  6. METFORMIN [Concomitant]
     Active Substance: METFORMIN HYDROCHLORIDE
     Indication: TYPE 2 DIABETES MELLITUS
     Dosage: STYRKE. 500MG
     Route: 048
  7. CALCIUM OG D-VITAMIN [Concomitant]
     Indication: MINERAL SUPPLEMENTATION
     Dosage: STYRKE: 400MG + 38MG
     Route: 048
     Dates: start: 20190131
  8. HJERTEMAGNYL [Concomitant]
     Active Substance: ASPIRIN\MAGNESIUM OXIDE
     Indication: ANTICOAGULANT THERAPY
     Dosage: STYRKE. 75MG
     Route: 048
     Dates: start: 20190131
  9. JARDIANCE [Suspect]
     Active Substance: EMPAGLIFLOZIN
     Indication: TYPE 2 DIABETES MELLITUS
     Dosage: STYRKE: 25MG
     Route: 048
     Dates: start: 20171124, end: 20190131
  10. ATORVASTATIN [Concomitant]
     Active Substance: ATORVASTATIN
     Indication: HYPERCHOLESTEROLAEMIA
     Dosage: STYRKE: 10 MG
     Route: 048
     Dates: start: 20190131
  11. OZEMPIC [Concomitant]
     Active Substance: SEMAGLUTIDE
     Indication: TYPE 2 DIABETES MELLITUS
     Dosage: STYRKE: 1MG PHARMACEUTICAL FORM: SOLUTION FOR INJECTION IN PRE-FILLED PEN
     Route: 065
     Dates: start: 20181026, end: 20190205
  12. EZETROL [Concomitant]
     Active Substance: EZETIMIBE
     Indication: HYPERCHOLESTEROLAEMIA
     Dosage: STYRKE: 75 MG
     Route: 048
     Dates: start: 20190131
  13. PRAMIPEXOLE. [Concomitant]
     Active Substance: PRAMIPEXOLE
     Indication: RESTLESS LEGS SYNDROME
     Dosage: STYRKE: 0.088MG
     Route: 048
     Dates: start: 20190131
  14. GABAPENTIN. [Concomitant]
     Active Substance: GABAPENTIN
     Indication: PAIN
     Dosage: DOSIS: 1 KAPSEL EFTER BEHOV. STYRKE: 300MG; AS REQUIRED DOSE: 1 CAPSULE WHEN NEEDED
     Route: 048
  15. ISOSORBIDE MONONITRATE. [Concomitant]
     Active Substance: ISOSORBIDE MONONITRATE
     Indication: ANGINA PECTORIS
     Dosage: STYRKE: 30 MG
     Route: 048
     Dates: start: 201612

REACTIONS (4)
  - Diarrhoea [Recovered/Resolved]
  - Vomiting [Recovered/Resolved]
  - Abdominal pain [Recovered/Resolved]
  - Ketoacidosis [Recovered/Resolved]

NARRATIVE: CASE EVENT DATE: 201901
